FAERS Safety Report 10285286 (Version 1)
Quarter: 2014Q3

REPORT INFORMATION
  Report Type: Other
  Country: US (occurrence: US)
  Receive Date: 20140708
  Receipt Date: 20140708
  Transmission Date: 20150326
  Serious: Yes (Other)
  Sender: FDA-Public Use
  Company Number: US-BRISTOL-MYERS SQUIBB COMPANY-21181524

PATIENT
  Age: 37 Year
  Sex: Female

DRUGS (1)
  1. TRIAMCINOLONE ACE INJ [Suspect]
     Active Substance: TRIAMCINOLONE ACETONIDE
     Dosage: INTRAVITREAL:INJECTION

REACTIONS (2)
  - Retinal scar [Unknown]
  - Retinitis [Recovered/Resolved]
